FAERS Safety Report 6902175-9 (Version None)
Quarter: 2010Q3

REPORT INFORMATION
  Report Type: 
  Country: None (occurrence: None)
  Receive Date: 20100803
  Receipt Date: 20080430
  Transmission Date: 20110219
  Serious: No
  Sender: FDA-Public Use
  Company Number: US-PFIZER INC-2008038270

PATIENT
  Sex: Female
  Weight: 95 kg

DRUGS (2)
  1. LYRICA [Suspect]
     Indication: FIBROMYALGIA
     Route: 048
     Dates: start: 20080101
  2. PREMARIN [Concomitant]

REACTIONS (3)
  - ALOPECIA [None]
  - DIZZINESS [None]
  - DRUG DOSE OMISSION [None]
